FAERS Safety Report 7738162-0 (Version None)
Quarter: 2011Q3

REPORT INFORMATION
  Report Type: 
  Country: None (occurrence: None)
  Receive Date: 20110908
  Receipt Date: 20110901
  Transmission Date: 20111222
  Serious: Yes (Other)
  Sender: FDA-Public Use
  Company Number: BR-PFIZER INC-2011179385

PATIENT
  Sex: Female

DRUGS (3)
  1. DEPO-PROVERA [Suspect]
     Indication: OFF LABEL USE
     Dosage: 150 MG, UNK
     Route: 030
  2. DEPO-PROVERA [Suspect]
     Indication: PITUITARY TUMOUR RECURRENT
  3. DEPO-PROVERA [Suspect]
     Indication: MENSTRUATION IRREGULAR

REACTIONS (3)
  - HYPOTENSION [None]
  - ANAEMIA [None]
  - AMENORRHOEA [None]
